FAERS Safety Report 10152945 (Version 2)
Quarter: 2014Q2

REPORT INFORMATION
  Report Type: Spontaneous
  Country: US (occurrence: US)
  Receive Date: 20140505
  Receipt Date: 20140519
  Transmission Date: 20141212
  Serious: Yes (Other)
  Sender: FDA-Public Use
  Company Number: US-TEVA-479638USA

PATIENT
  Age: 21 Year
  Sex: Female
  Weight: 48.12 kg

DRUGS (2)
  1. PLAN B ONE-STEP [Suspect]
     Indication: POST COITAL CONTRACEPTION
     Dosage: 1.5 MILLIGRAM DAILY;
     Route: 048
     Dates: start: 20140406, end: 20140406
  2. UNKNOWN EMERGENCY CONTRACEPTIVE [Suspect]
     Indication: POST COITAL CONTRACEPTION
     Dates: start: 20140408

REACTIONS (5)
  - Pregnancy after post coital contraception [Unknown]
  - Menstruation irregular [Recovered/Resolved]
  - Dizziness [Recovered/Resolved]
  - Vomiting [Recovered/Resolved]
  - Menstruation delayed [Not Recovered/Not Resolved]
